FAERS Safety Report 9739200 (Version 1)
Quarter: 2013Q4

REPORT INFORMATION
  Report Type: Spontaneous
  Country: US (occurrence: US)
  Receive Date: 20131209
  Receipt Date: 20131209
  Transmission Date: 20140711
  Serious: No
  Sender: FDA-Public Use
  Company Number: US-PFIZER INC-2013351146

PATIENT
  Sex: Female

DRUGS (3)
  1. LYRICA [Suspect]
     Indication: INTERVERTEBRAL DISC PROTRUSION
     Dosage: UNK, 2X/DAY
     Dates: start: 2013
  2. LYRICA [Suspect]
     Indication: SPINAL PAIN
  3. PERCOCET [Suspect]
     Dosage: 10 MG, UNK

REACTIONS (3)
  - Off label use [Unknown]
  - Pain [Unknown]
  - Drug ineffective for unapproved indication [Unknown]
